FAERS Safety Report 5200105-1 (Version None)
Quarter: 2007Q1

REPORT INFORMATION
  Report Type: 
  Country: None (occurrence: None)
  Receive Date: 20070105
  Receipt Date: 20061229
  Transmission Date: 20070707
  Serious: Yes (Hospitalization)
  Sender: FDA-Public Use
  Company Number: JP-GLAXOSMITHKLINE-B0451776A

PATIENT
  Age: 58 Year
  Sex: Female
  Weight: 55 kg

DRUGS (8)
  1. PAXIL [Suspect]
     Indication: DEPRESSION
     Dosage: 20MG PER DAY
     Route: 048
     Dates: end: 20061208
  2. TAKEPRON [Concomitant]
     Route: 048
     Dates: end: 20061208
  3. MEILAX [Concomitant]
     Route: 048
     Dates: end: 20061208
  4. GASTROM [Concomitant]
     Route: 048
     Dates: end: 20061208
  5. EPADEL [Concomitant]
     Route: 048
     Dates: end: 20061208
  6. AMLODIPINE BESYLATE [Concomitant]
     Route: 048
     Dates: end: 20061208
  7. UNKNOWN DRUG [Concomitant]
     Route: 048
     Dates: end: 20061208
  8. ALLOPURINOL SODIUM [Concomitant]

REACTIONS (13)
  - ALANINE AMINOTRANSFERASE INCREASED [None]
  - ASPARTATE AMINOTRANSFERASE INCREASED [None]
  - ASTHENIA [None]
  - BLOOD ALKALINE PHOSPHATASE INCREASED [None]
  - BLOOD CHOLINESTERASE DECREASED [None]
  - BLOOD CREATINE PHOSPHOKINASE INCREASED [None]
  - BLOOD LACTATE DEHYDROGENASE INCREASED [None]
  - DECREASED APPETITE [None]
  - HAEMOGLOBIN INCREASED [None]
  - IMMOBILE [None]
  - RHABDOMYOLYSIS [None]
  - TREMOR [None]
  - WHITE BLOOD CELL COUNT INCREASED [None]
